FAERS Safety Report 6714863-8 (Version None)
Quarter: 2010Q2

REPORT INFORMATION
  Report Type: 
  Country: None (occurrence: None)
  Receive Date: 20100507
  Receipt Date: 20100423
  Transmission Date: 20101027
  Serious: Yes (Life-Threatening, Other)
  Sender: FDA-Public Use
  Company Number: US-BAYER-200939457NA

PATIENT
  Age: 40 Year
  Sex: Female
  Weight: 86 kg

DRUGS (9)
  1. YAZ [Suspect]
     Indication: PREMENSTRUAL SYNDROME
     Dosage: 1 DF
     Route: 048
     Dates: start: 20070801, end: 20071101
  2. KLONOPIN [Concomitant]
  3. TOPAMAX [Concomitant]
  4. PRISTIQ [Concomitant]
  5. ZOLOFT [Concomitant]
  6. DETROL LA [Concomitant]
  7. COLACE [Concomitant]
  8. ASPIRIN [Concomitant]
  9. NORETHINDRONE AND ETHINYL ESTRADIOL [Concomitant]

REACTIONS (5)
  - DEEP VEIN THROMBOSIS [None]
  - DYSPNOEA [None]
  - OEDEMA PERIPHERAL [None]
  - PAIN IN EXTREMITY [None]
  - PULMONARY EMBOLISM [None]
